FAERS Safety Report 7649476-7 (Version None)
Quarter: 2011Q3

REPORT INFORMATION
  Report Type: 
  Country: None (occurrence: None)
  Receive Date: 20110727
  Receipt Date: 20110721
  Transmission Date: 20111222
  Serious: Yes (Hospitalization)
  Sender: FDA-Public Use
  Company Number: CIP10002672

PATIENT
  Age: 63 Year
  Sex: Female

DRUGS (11)
  1. FOLIC ACID [Concomitant]
  2. FISH OIL (FISH OIL) [Concomitant]
  3. LIPITOR [Concomitant]
  4. LINUM USITATISSIMUM SEED (LINUM USITATISSIMUM SEED) [Concomitant]
  5. ACTONEL [Suspect]
     Dosage: 150 MG ONCEN MONTHLY, ORAL
     Route: 048
     Dates: start: 20101001, end: 20101201
  6. MIRALAX [Concomitant]
  7. ATELVIA [Suspect]
     Dates: start: 20110101
  8. CLARINEX [Concomitant]
  9. CALCIUM (CALCIUM) [Concomitant]
  10. PREMARIN [Concomitant]
  11. VITAMINS NOS (VITAMINS NOS) [Concomitant]

REACTIONS (11)
  - NAUSEA [None]
  - DYSPEPSIA [None]
  - MALAISE [None]
  - DEHYDRATION [None]
  - PRESYNCOPE [None]
  - INFLUENZA LIKE ILLNESS [None]
  - DIARRHOEA [None]
  - UNEVALUABLE EVENT [None]
  - SYNCOPE [None]
  - VOMITING [None]
  - LOSS OF CONSCIOUSNESS [None]
